FAERS Safety Report 8459754 (Version 2)
Quarter: 2012Q4

REPORT INFORMATION
  Report Type: 
  Country: US (occurrence: US)
  Receive Date: 20120314
  Receipt Date: 20121024
  Transmission Date: 20130627
  Serious: No
  Sender: FDA-Public Use
  Company Number: US-ASTRAZENECA-2012SE10844

PATIENT
  Age: 55 Year
  Sex: Female
  Weight: 61.2 kg

DRUGS (4)
  1. TOPROL XL [Suspect]
     Indication: BLOOD PRESSURE INCREASED
     Route: 048
     Dates: start: 2001, end: 2007
  2. TOPROL XL [Suspect]
     Indication: BLOOD PRESSURE INCREASED
     Route: 048
     Dates: start: 200708, end: 201002
  3. TOPROL XL [Suspect]
     Indication: BLOOD PRESSURE INCREASED
     Route: 048
  4. LEVOTHYROXINE SODIUM [Suspect]
     Indication: THYROID HORMONE REPLACEMENT THERAPY
     Route: 065
     Dates: start: 1987

REACTIONS (21)
  - Throat tightness [Unknown]
  - Gastrooesophageal reflux disease [Unknown]
  - Neck deformity [Unknown]
  - Bone pain [Unknown]
  - Skin disorder [Unknown]
  - Alopecia [Unknown]
  - Hypoaesthesia [Unknown]
  - Neck pain [Unknown]
  - Alopecia [Unknown]
  - Skin burning sensation [Unknown]
  - Oesophageal stenosis [Unknown]
  - Dysphagia [Unknown]
  - Dehydration [Unknown]
  - Nasal dryness [Unknown]
  - Epistaxis [Unknown]
  - Dry eye [Unknown]
  - Skin disorder [Unknown]
  - Malaise [Unknown]
  - Circumstance or information capable of leading to medication error [Unknown]
  - Fatigue [Unknown]
  - Hair texture abnormal [Unknown]
